FAERS Safety Report 10534153 (Version 2)
Quarter: 2014Q4

REPORT INFORMATION
  Report Type: Spontaneous
  Country: NL (occurrence: NL)
  Receive Date: 20141022
  Receipt Date: 20141022
  Transmission Date: 20150529
  Serious: Yes (Other)
  Sender: FDA-Public Use
  Company Number: NL-US-EMD SERONO, INC.-7022991

PATIENT
  Age: 55 Year
  Sex: Female
  Weight: 51 kg

DRUGS (17)
  1. TIOTROPIUM [Concomitant]
     Active Substance: TIOTROPIUM
     Indication: ASTHMA
     Dates: start: 201209
  2. TAMSULOSIN [Concomitant]
     Active Substance: TAMSULOSIN
     Indication: BLADDER SPASM
     Route: 048
     Dates: start: 20131220
  3. FENPROCOUMON RATIOPHARM [Concomitant]
     Indication: ANTICOAGULANT THERAPY
     Route: 048
     Dates: start: 201001
  4. SPIRIVA [Concomitant]
     Active Substance: TIOTROPIUM BROMIDE MONOHYDRATE
     Indication: ASTHMA
     Route: 055
     Dates: start: 201209
  5. REBIF [Suspect]
     Active Substance: INTERFERON BETA-1A
     Route: 058
     Dates: start: 20100719
  6. SOTALOL. [Concomitant]
     Active Substance: SOTALOL
     Indication: HEART RATE IRREGULAR
     Route: 048
     Dates: start: 201112
  7. SALBUTAMOL [Concomitant]
     Active Substance: ALBUTEROL
     Indication: ASTHMA
     Dosage: DO 60DO DISCUS
  8. SYMBICORT [Concomitant]
     Active Substance: BUDESONIDE\FORMOTEROL FUMARATE DIHYDRATE
  9. SIFROL [Concomitant]
     Active Substance: PRAMIPEXOLE
     Indication: TREMOR
     Route: 048
     Dates: start: 2012
  10. RIVOTRIL [Concomitant]
     Active Substance: CLONAZEPAM
     Indication: TREMOR
     Route: 048
     Dates: start: 20130503
  11. CIPROFLOXACINE [Concomitant]
     Active Substance: CIPROFLOXACIN
     Indication: PRODUCT USED FOR UNKNOWN INDICATION
     Route: 048
  12. REBIF [Suspect]
     Active Substance: INTERFERON BETA-1A
     Indication: MULTIPLE SCLEROSIS
     Route: 058
     Dates: start: 20100510
  13. SYMBICORT [Concomitant]
     Active Substance: BUDESONIDE\FORMOTEROL FUMARATE DIHYDRATE
     Indication: ASTHMA
     Dates: start: 1995
  14. PRAMIPEXOLE [Concomitant]
     Active Substance: PRAMIPEXOLE
     Indication: MUSCLE SPASMS
     Dosage: (0.088MG BASE)
     Route: 048
     Dates: start: 2009
  15. REBIF [Suspect]
     Active Substance: INTERFERON BETA-1A
     Route: 058
     Dates: start: 20140609
  16. SIMVASTATIN. [Concomitant]
     Active Substance: SIMVASTATIN
     Indication: BLOOD CHOLESTEROL INCREASED
     Route: 048
     Dates: start: 2008
  17. SIFROL [Concomitant]
     Active Substance: PRAMIPEXOLE
     Route: 048

REACTIONS (20)
  - Cataract [Unknown]
  - Injection site hypoaesthesia [Not Recovered/Not Resolved]
  - Influenza like illness [Not Recovered/Not Resolved]
  - Burning sensation [Unknown]
  - General physical health deterioration [Unknown]
  - Multiple sclerosis [Unknown]
  - Injection site pruritus [Not Recovered/Not Resolved]
  - Urinary tract disorder [Unknown]
  - Urinary tract infection [Unknown]
  - Movement disorder [Unknown]
  - Pain in extremity [Recovered/Resolved]
  - Hypoaesthesia [Unknown]
  - Blood glucose fluctuation [Not Recovered/Not Resolved]
  - Muscular weakness [Unknown]
  - Injection site erythema [Not Recovered/Not Resolved]
  - Skin discolouration [Not Recovered/Not Resolved]
  - Eye disorder [Not Recovered/Not Resolved]
  - Post procedural complication [Unknown]
  - Fatigue [Not Recovered/Not Resolved]
  - Injection site pain [Not Recovered/Not Resolved]

NARRATIVE: CASE EVENT DATE: 20101002
